FAERS Safety Report 4640537-3 (Version None)
Quarter: 2005Q2

REPORT INFORMATION
  Report Type: 
  Country: None (occurrence: None)
  Receive Date: 20050419
  Receipt Date: 20050404
  Transmission Date: 20051028
  Serious: Yes (Death)
  Sender: FDA-Public Use
  Company Number: MK200504-0106-1

PATIENT
  Age: 32 Year
  Sex: Male

DRUGS (1)
  1. BAROSPERSE ENEMA KT 454GM/160Z BARIUM SULFATE [Suspect]
     Indication: BARIUM ENEMA
     Dates: start: 19960329, end: 19960329

REACTIONS (12)
  - ARTHRITIS BACTERIAL [None]
  - COAGULOPATHY [None]
  - COLONIC FISTULA [None]
  - HEPATIC FAILURE [None]
  - LEUKOCYTOSIS [None]
  - LOWER GASTROINTESTINAL HAEMORRHAGE [None]
  - METABOLIC DISORDER [None]
  - POST PROCEDURAL COMPLICATION [None]
  - POST PROCEDURAL HAEMORRHAGE [None]
  - SHOCK [None]
  - UPPER GASTROINTESTINAL HAEMORRHAGE [None]
  - URETERIC FISTULA [None]
